FAERS Safety Report 13123648 (Version 1)
Quarter: 2017Q1

REPORT INFORMATION
  Report Type: Spontaneous
  Country: BR (occurrence: BR)
  Receive Date: 20170117
  Receipt Date: 20170117
  Transmission Date: 20170428
  Serious: Yes (Other)
  Sender: FDA-Public Use
  Company Number: PHHY2017BR003769

PATIENT
  Sex: Female

DRUGS (2)
  1. AMOXICILLIN SODIUM+POTASSIUM CLAVULANATE [Suspect]
     Active Substance: AMOXICILLIN\CLAVULANATE POTASSIUM
     Indication: SINUSITIS
     Route: 065
     Dates: start: 20161227
  2. DIPYRONE [Concomitant]
     Active Substance: DIPYRONE
     Indication: PRODUCT USED FOR UNKNOWN INDICATION
     Route: 065

REACTIONS (8)
  - Nasal congestion [Unknown]
  - Eating disorder [Unknown]
  - Swelling face [Unknown]
  - Somnolence [Unknown]
  - Dyspnoea [Unknown]
  - Drug ineffective [Unknown]
  - Head discomfort [Unknown]
  - Ageusia [Unknown]
